FAERS Safety Report 15549183 (Version 2)
Quarter: 2019Q1

REPORT INFORMATION
  Report Type: Spontaneous
  Country: US (occurrence: US)
  Receive Date: 20181025
  Receipt Date: 20190222
  Transmission Date: 20190417
  Serious: No
  Sender: FDA-Public Use
  Company Number: US-ELI_LILLY_AND_COMPANY-US201810011746

PATIENT
  Sex: Female

DRUGS (1)
  1. TALTZ [Suspect]
     Active Substance: IXEKIZUMAB
     Indication: PSORIASIS
     Dosage: UNK UNK, UNKNOWN
     Route: 058
     Dates: start: 2018

REACTIONS (3)
  - Oral pain [Recovered/Resolved]
  - Oropharyngeal pain [Recovered/Resolved]
  - Mouth ulceration [Recovered/Resolved]
